FAERS Safety Report 5249867-8 (Version None)
Quarter: 2007Q1

REPORT INFORMATION
  Report Type: 
  Country: None (occurrence: None)
  Receive Date: 20070228
  Receipt Date: 20070119
  Transmission Date: 20070707
  Serious: Yes (Hospitalization, Other)
  Sender: FDA-Public Use
  Company Number: US-AMGEN-STX207745

PATIENT
  Sex: Female

DRUGS (1)
  1. ENBREL [Suspect]
     Indication: RHEUMATOID ARTHRITIS
     Route: 058
     Dates: start: 20021101

REACTIONS (7)
  - ABDOMINAL HERNIA [None]
  - HERNIA [None]
  - INTERVERTEBRAL DISC PROTRUSION [None]
  - NEUROMA [None]
  - SINUS OPERATION [None]
  - STAPHYLOCOCCAL INFECTION [None]
  - SURGERY [None]
